FAERS Safety Report 7438984-X (Version None)
Quarter: 2011Q2

REPORT INFORMATION
  Report Type: 
  Country: None (occurrence: None)
  Receive Date: 20110427
  Receipt Date: 20110415
  Transmission Date: 20111010
  Serious: Yes (Hospitalization)
  Sender: FDA-Public Use
  Company Number: DE-AMGEN-DEUCT2011005411

PATIENT
  Age: 55 Year
  Sex: Male
  Weight: 90 kg

DRUGS (11)
  1. PREDNISOLON                        /00016201/ [Concomitant]
     Dosage: 7.5 MG, 1X/DAY
     Dates: start: 20100401, end: 20100501
  2. PREDNISOLON                        /00016201/ [Concomitant]
     Indication: RHEUMATOID ARTHRITIS
     Dosage: 10 MG, 1X/DAY
     Dates: end: 20100401
  3. PREDNISOLON                        /00016201/ [Concomitant]
     Dosage: 20 MG, 1X/DAY
     Dates: start: 20101201
  4. DICLAC                             /00372302/ [Concomitant]
     Indication: RHEUMATOID ARTHRITIS
     Dosage: UNK
     Dates: start: 20100601
  5. METHOTREXATE [Concomitant]
     Dosage: 10 MG, WEEKLY
     Dates: start: 20100701
  6. IMBUN                              /00109202/ [Concomitant]
     Indication: RHEUMATOID ARTHRITIS
     Dosage: 1000 MG, 1X/DAY
     Dates: end: 20100601
  7. ETANERCEPT [Suspect]
     Indication: RHEUMATOID ARTHRITIS
     Dosage: 50 MG, QWK
     Route: 058
     Dates: start: 20100326, end: 20110101
  8. PREDNISOLON                        /00016201/ [Concomitant]
     Dosage: 30 MG, 1X/DAY
     Dates: start: 20100509, end: 20100511
  9. PREDNISOLON                        /00016201/ [Concomitant]
     Dosage: 10 MG, 1X/DAY
     Dates: start: 20100511, end: 20101201
  10. AMITRIPTYLINE [Concomitant]
     Indication: DEPRESSION
     Dosage: 75 MG, 1X/DAY
     Dates: start: 20020101
  11. METHOTREXATE [Concomitant]
     Indication: RHEUMATOID ARTHRITIS
     Dosage: 15 MG, WEEKLY
     Dates: start: 20100501, end: 20100701

REACTIONS (3)
  - ATRIAL FIBRILLATION [None]
  - RHEUMATOID ARTHRITIS [None]
  - PERICARDIAL EFFUSION [None]
